FAERS Safety Report 6613139-7 (Version None)
Quarter: 2010Q1

REPORT INFORMATION
  Report Type: 
  Country: None (occurrence: None)
  Receive Date: 20100225
  Receipt Date: 20100217
  Transmission Date: 20100710
  Serious: Yes (Hospitalization)
  Sender: FDA-Public Use
  Company Number: 20097218

PATIENT
  Age: 43 Year
  Sex: Male

DRUGS (1)
  1. LIORESAL [Suspect]
     Indication: MUSCLE SPASTICITY
     Dosage: MCG, DAILY, INTRATHECAL
     Route: 037

REACTIONS (16)
  - ALLERGY TO METALS [None]
  - AUTOIMMUNE DISORDER [None]
  - COGNITIVE DISORDER [None]
  - COLLAPSE OF LUNG [None]
  - HYPERSENSITIVITY [None]
  - IMPLANT SITE PAIN [None]
  - LETHARGY [None]
  - LOSS OF CONSCIOUSNESS [None]
  - MEDICAL DEVICE COMPLICATION [None]
  - MENTAL STATUS CHANGES [None]
  - PEMPHIGUS [None]
  - RASH [None]
  - SKIN REACTION [None]
  - SOMNOLENCE [None]
  - UNEVALUABLE EVENT [None]
  - UNRESPONSIVE TO STIMULI [None]
